FAERS Safety Report 12824712 (Version 1)
Quarter: 2016Q4

REPORT INFORMATION
  Report Type: Spontaneous
  Country: GB (occurrence: GB)
  Receive Date: 20161007
  Receipt Date: 20161007
  Transmission Date: 20170207
  Serious: Yes (Hospitalization)
  Sender: FDA-Public Use
  Company Number: GB-TEVA-699469ACC

PATIENT
  Age: 55 Year
  Sex: Female

DRUGS (10)
  1. TERBINAFINE. [Suspect]
     Active Substance: TERBINAFINE
     Indication: ONYCHOMYCOSIS
     Route: 048
  2. OMEPRAZOLE. [Concomitant]
     Active Substance: OMEPRAZOLE
  3. LOSARTAN. [Concomitant]
     Active Substance: LOSARTAN
  4. AMLODIPIN [Concomitant]
     Active Substance: AMLODIPINE BESYLATE
  5. PRAVASTATIN. [Concomitant]
     Active Substance: PRAVASTATIN
  6. PIOGLITAZONE. [Concomitant]
     Active Substance: PIOGLITAZONE
  7. ASPIRIN. [Concomitant]
     Active Substance: ASPIRIN
  8. CLONIDINE. [Concomitant]
     Active Substance: CLONIDINE
  9. LEVOTHYROXINE SODIUM. [Concomitant]
     Active Substance: LEVOTHYROXINE SODIUM
  10. METFORMIN [Concomitant]
     Active Substance: METFORMIN HYDROCHLORIDE

REACTIONS (7)
  - Dysgeusia [Recovering/Resolving]
  - Fatigue [Recovering/Resolving]
  - Renal impairment [Unknown]
  - Decreased appetite [Recovering/Resolving]
  - Dehydration [Unknown]
  - Hypophagia [Unknown]
  - Gastrointestinal motility disorder [Recovering/Resolving]
